FAERS Safety Report 9432360 (Version 3)
Quarter: 2013Q3

REPORT INFORMATION
  Report Type: Spontaneous
  Country: US (occurrence: US)
  Receive Date: 20130731
  Receipt Date: 20130904
  Transmission Date: 20140515
  Serious: Yes (Death, Hospitalization)
  Sender: FDA-Public Use
  Company Number: US-PFIZER INC-2013221775

PATIENT
  Age: 53 Year
  Sex: Male
  Weight: 123.81 kg

DRUGS (25)
  1. LIPITOR [Suspect]
     Indication: BLOOD CHOLESTEROL INCREASED
     Dosage: 20 MG, 1X/DAY
     Route: 048
     Dates: start: 20080303
  2. LIPITOR [Suspect]
     Indication: HYPERLIPIDAEMIA
     Dosage: 40 MG, 1X/DAY
     Route: 048
     Dates: end: 20130405
  3. LIPITOR [Suspect]
     Indication: DIABETES MELLITUS
  4. LIPITOR [Suspect]
     Indication: CORONARY ARTERY DISEASE
  5. METFORMIN HCL [Suspect]
     Indication: DIABETES MELLITUS
     Dosage: 500 MG, 2X/DAY
     Route: 048
     Dates: start: 20110622
  6. ZOLOFT [Suspect]
     Indication: ANXIETY
     Dosage: 50 MG, DAILY
     Route: 048
     Dates: start: 20111215, end: 20120503
  7. ZOLOFT [Suspect]
     Dosage: 100 MG, DAILY
     Route: 048
     Dates: start: 20120503
  8. TAXOTERE [Suspect]
     Dosage: 140 MG, DAILY
     Route: 042
  9. NEULASTA [Suspect]
     Indication: WHITE BLOOD CELL COUNT
  10. DIOVAN [Concomitant]
     Dosage: UNK
  11. TOPROL XL [Concomitant]
     Dosage: UNK
  12. ASPIRIN [Concomitant]
     Indication: CORONARY ARTERY DISEASE
     Dosage: 81 MG, DAILY
     Route: 048
     Dates: start: 201107
  13. COREG [Concomitant]
     Indication: CORONARY ARTERY DISEASE
     Dosage: 6.25 MG, 2X/DAY
     Route: 048
  14. PEPCID [Concomitant]
     Dosage: 20 MG, DAILY
     Route: 042
  15. DEXAMETHASONE SODIUM PHOSPHATE [Concomitant]
     Dosage: 10, DAILY
     Route: 042
  16. ONDANSETRON HYDROCHLORIDE [Concomitant]
     Dosage: 8 MG, DAILY
     Route: 042
  17. BENADRYL [Concomitant]
     Dosage: 25 MG, DAILY
     Route: 042
  18. CALTRATE 600+D [Concomitant]
     Dosage: 1 DF, 2X/DAY
     Route: 048
  19. SERTRALINE HYDROCHLORIDE [Concomitant]
     Dosage: 100 MG, DAILY
     Route: 048
  20. ATIVAN [Concomitant]
     Dosage: 0.5 MG, 4X/DAY AS NEEDED
     Route: 048
  21. ZOFRAN [Concomitant]
     Dosage: 8 MG, 2X/DAY AS NEEDED BEFORE MEALS
     Route: 048
  22. PROCHLORPERAZINE MALEATE [Concomitant]
     Dosage: 10 MG, 4X/DAY AS NEEDED
     Route: 048
  23. DEXAMETHASONE [Concomitant]
     Dosage: 4 MG, 2X/DAY BEFORE MEALS
     Route: 048
  24. DIOVAN HCT [Concomitant]
     Indication: HYPERTENSION
     Dosage: [VALSARTAN 160]/ [HYDROCHLOROTHIAZIDE ^175^], DAILY
     Route: 048
     Dates: start: 20080303
  25. DIOVAN HCT [Concomitant]
     Dosage: [VALSARTAN 80 MG]/ [HYDROCHLOROTHIAZIDE 12.5 MG], DAILY
     Route: 048

REACTIONS (9)
  - Prostate cancer metastatic [Fatal]
  - Fatigue [Unknown]
  - Decreased appetite [Unknown]
  - Dysgeusia [Unknown]
  - Weight decreased [Unknown]
  - Nausea [Unknown]
  - Dizziness [Unknown]
  - Abdominal discomfort [Recovered/Resolved]
  - Liver function test abnormal [Unknown]
